FAERS Safety Report 15918762 (Version 3)
Quarter: 2019Q1

REPORT INFORMATION
  Report Type: Spontaneous
  Country: CN (occurrence: CN)
  Receive Date: 20190205
  Receipt Date: 20190214
  Transmission Date: 20190417
  Serious: Yes (Hospitalization, Other)
  Sender: FDA-Public Use
  Company Number: CN-PFIZER INC-2019024778

PATIENT
  Age: 78 Year
  Sex: Male

DRUGS (14)
  1. PIPERACILLIN AND TAZOBACTAM [Concomitant]
     Active Substance: PIPERACILLIN SODIUM\TAZOBACTAM SODIUM
     Indication: ANTIINFLAMMATORY THERAPY
     Dosage: 2.5 G, 2X/DAY
     Route: 042
     Dates: start: 201704
  2. VITAMIN C ACID [Concomitant]
     Active Substance: ASCORBIC ACID
     Indication: FLUID REPLACEMENT
     Dosage: 2.5 G, UNK
     Dates: start: 201704
  3. FUROSEMIDE. [Concomitant]
     Active Substance: FUROSEMIDE
     Indication: DIURETIC THERAPY
     Dosage: 40 MG, 1X/DAY
     Route: 042
     Dates: start: 201704
  4. FAT EMULSION NOS [Concomitant]
     Active Substance: EGG PHOSPHOLIPIDS\SAFFLOWER OIL\SOYBEAN OIL
     Indication: NUTRITIONAL SUPPLEMENTATION
     Dosage: 250 ML, 1X/DAY
     Route: 042
     Dates: start: 201704, end: 201704
  5. ATROPINE SULFATE. [Suspect]
     Active Substance: ATROPINE SULFATE
     Indication: CHEMICAL POISONING
     Dosage: 63.5 MG, SINGLE
     Dates: start: 201704, end: 201704
  6. GLUTATHIONE [Concomitant]
     Active Substance: GLUTATHIONE
     Indication: LIVER DISORDER
     Dosage: 1.8 G, 1X/DAY
     Route: 042
     Dates: start: 201704, end: 201704
  7. LANSOPRAZOLE. [Concomitant]
     Active Substance: LANSOPRAZOLE
     Indication: ANTACID THERAPY
     Dosage: 30 MG, 2X/DAY
     Route: 042
     Dates: start: 201704, end: 201704
  8. COMPOUND AMINO ACID (18AA-IV) [Concomitant]
     Indication: NUTRITIONAL SUPPLEMENTATION
     Dosage: 250 ML, 1X/DAY
     Route: 042
     Dates: start: 201704, end: 201704
  9. PENEHYCLIDINE HYDROCHLORIDE [Interacting]
     Active Substance: PENEHYCLIDINE HYDROCHLORIDE
     Indication: CHEMICAL POISONING
     Dosage: UNK
     Dates: start: 201704, end: 201704
  10. DIAZEPAM. [Concomitant]
     Active Substance: DIAZEPAM
     Indication: SEDATION
     Dosage: UNK
     Dates: start: 201704
  11. DEXTROSE 5% [Concomitant]
     Active Substance: DEXTROSE
     Indication: FLUID REPLACEMENT
     Dosage: 250 ML, 2X/DAY
     Route: 042
     Dates: start: 201704
  12. VITAMIN B6 [Concomitant]
     Active Substance: PYRIDOXINE HYDROCHLORIDE
     Indication: FLUID REPLACEMENT
     Dosage: 0.3 G, UNK
     Dates: start: 201704
  13. PRALIDOXIME [Concomitant]
     Active Substance: PRALIDOXIME
     Indication: CHEMICAL POISONING
     Dosage: UNK
     Dates: start: 201704, end: 201704
  14. MANNITOL 20% A.N.B [Concomitant]
     Indication: DIURETIC THERAPY
     Dosage: 250 ML, 1X/DAY
     Route: 042
     Dates: start: 201704

REACTIONS (23)
  - Heart rate increased [Recovering/Resolving]
  - Dry skin [Recovering/Resolving]
  - Pupillary light reflex tests abnormal [Recovering/Resolving]
  - Muscle spasms [None]
  - Renal impairment [None]
  - Toxicity to various agents [Recovering/Resolving]
  - Pyrexia [Recovered/Resolved]
  - Condition aggravated [None]
  - Flushing [Recovering/Resolving]
  - Delirium [Recovering/Resolving]
  - Vomiting projectile [None]
  - Prescribed overdose [None]
  - Hyperhidrosis [None]
  - Agitation [Recovering/Resolving]
  - Rales [Recovering/Resolving]
  - Irritability [None]
  - Mydriasis [Recovering/Resolving]
  - Nausea [None]
  - Atrial fibrillation [None]
  - Gastric ulcer [None]
  - Drug interaction [Recovering/Resolving]
  - Hepatic function abnormal [None]
  - White blood cell count increased [None]

NARRATIVE: CASE EVENT DATE: 20170407
